FAERS Safety Report 9624064 (Version 1)
Quarter: 2013Q4

REPORT INFORMATION
  Report Type: Spontaneous
  Country: US (occurrence: US)
  Receive Date: 20131015
  Receipt Date: 20131015
  Transmission Date: 20140711
  Serious: No
  Sender: FDA-Public Use
  Company Number: US-BAUSCH-BL-2012-001787

PATIENT
  Age: 61 Year
  Sex: Male

DRUGS (3)
  1. NEOMYCIN AND POLYMYXIN B SULFATES AND HYDROCORTISONE OTIC SUSPENSION U [Suspect]
     Indication: CERUMEN REMOVAL
     Dosage: 4 DROPS; OTIC; 4 TIMES DAILY
     Route: 001
     Dates: start: 20120824, end: 20120826
  2. NEOMYCIN AND POLYMYXIN B SULFATES AND HYDROCORTISONE OTIC SUSPENSION U [Suspect]
     Indication: PROPHYLAXIS
  3. NEOMYCIN AND POLYMYXIN B SULFATES AND HYDROCORTISONE OTIC SUSPENSION U [Suspect]
     Indication: OFF LABEL USE

REACTIONS (5)
  - Influenza like illness [Recovered/Resolved]
  - Pyrexia [Recovered/Resolved]
  - Ear congestion [Recovered/Resolved]
  - Increased upper airway secretion [Recovered/Resolved]
  - Ear disorder [Not Recovered/Not Resolved]
